FAERS Safety Report 5506550-9 (Version None)
Quarter: 2007Q4

REPORT INFORMATION
  Report Type: 
  Country: None (occurrence: None)
  Receive Date: 20071105
  Receipt Date: 20071031
  Transmission Date: 20080405
  Serious: Yes (Life-Threatening)
  Sender: FDA-Public Use
  Company Number: B0493475A

PATIENT
  Age: 74 Year
  Sex: Female
  Weight: 90 kg

DRUGS (6)
  1. ONDANSETRON [Suspect]
     Indication: VOMITING
     Route: 042
     Dates: start: 20071012, end: 20071012
  2. VALSARTAN [Concomitant]
     Dosage: 80MG PER DAY
     Route: 048
  3. BENDROFLUMETHIAZIDE [Concomitant]
     Dosage: 2.5MG PER DAY
     Route: 048
  4. ASPIRIN [Concomitant]
     Dosage: 75MG PER DAY
     Route: 048
  5. DICLOFENAC SODIUM [Concomitant]
     Dosage: 200MG PER DAY
     Route: 048
  6. ADALAT [Concomitant]
     Dosage: 20MG PER DAY
     Route: 065

REACTIONS (3)
  - BLOOD PRESSURE DECREASED [None]
  - BRADYCARDIA [None]
  - HEART RATE DECREASED [None]
